FAERS Safety Report 12530733 (Version 1)
Quarter: 2016Q3

REPORT INFORMATION
  Report Type: Spontaneous
  Country: US (occurrence: US)
  Receive Date: 20160706
  Receipt Date: 20160706
  Transmission Date: 20161109
  Serious: No
  Sender: FDA-Public Use
  Company Number: US-BAYER-2016-126777

PATIENT
  Age: 29 Year
  Sex: Female
  Weight: 56.24 kg

DRUGS (2)
  1. TRI-PREVIFEM [Concomitant]
     Active Substance: ETHINYL ESTRADIOL\NORGESTIMATE
     Dosage: UNK
  2. ALEVE [Suspect]
     Active Substance: NAPROXEN SODIUM
     Indication: INFLAMMATION
     Dosage: 1 DF, UNK
     Route: 048
     Dates: start: 20160516, end: 20160609

REACTIONS (3)
  - Product use issue [None]
  - Arthralgia [Not Recovered/Not Resolved]
  - Therapeutic response unexpected [None]

NARRATIVE: CASE EVENT DATE: 20160516
